FAERS Safety Report 16223249 (Version 1)
Quarter: 2019Q2

REPORT INFORMATION
  Report Type: Spontaneous
  Country: US (occurrence: US)
  Receive Date: 20190420
  Receipt Date: 20190420
  Transmission Date: 20190711
  Serious: No
  Sender: FDA-Public Use
  Company Number: None

PATIENT
  Age: 45 Year
  Sex: Female
  Weight: 116.1 kg

DRUGS (2)
  1. CELEXA [Concomitant]
     Active Substance: CITALOPRAM HYDROBROMIDE
  2. INJECTAFER [Suspect]
     Active Substance: FERRIC CARBOXYMALTOSE
     Indication: ANAEMIA
     Dates: start: 20190411, end: 20190418

REACTIONS (3)
  - Flushing [None]
  - Tachycardia [None]
  - Hypertension [None]

NARRATIVE: CASE EVENT DATE: 20190418
